FAERS Safety Report 15791344 (Version 2)
Quarter: 2019Q3

REPORT INFORMATION
  Report Type: Report from Study
  Country: US (occurrence: US)
  Receive Date: 20190104
  Receipt Date: 20190904
  Transmission Date: 20191004
  Serious: Yes (Hospitalization)
  Sender: FDA-Public Use
  Company Number: US-ACTELION-A-NJ2018-181277

PATIENT
  Sex: Male
  Weight: 97.05 kg

DRUGS (3)
  1. ELIQUIS [Concomitant]
     Active Substance: APIXABAN
  2. VELETRI [Suspect]
     Active Substance: EPOPROSTENOL
     Indication: PULMONARY ARTERIAL HYPERTENSION
     Dosage: 9 NG/KG, PER MIN
     Route: 042
  3. VELETRI [Suspect]
     Active Substance: EPOPROSTENOL
     Dosage: 13 NG/KG, PER MIN
     Route: 042

REACTIONS (8)
  - Hospitalisation [Unknown]
  - Pain in jaw [Unknown]
  - Central venous catheter removal [Unknown]
  - Myalgia [Unknown]
  - Arthralgia [Unknown]
  - Peripheral swelling [Unknown]
  - Hypotension [Unknown]
  - Palpitations [Unknown]
